FAERS Safety Report 13569982 (Version 1)
Quarter: 2017Q2

REPORT INFORMATION
  Report Type: Report from Study
  Country: US (occurrence: US)
  Receive Date: 20170522
  Receipt Date: 20170522
  Transmission Date: 20170830
  Serious: Yes (Other)
  Sender: FDA-Public Use
  Company Number: US-ACTELION-A-NJ2017-153851

PATIENT
  Age: 92 Year
  Sex: Male
  Weight: 77.98 kg

DRUGS (1)
  1. TRACLEER [Suspect]
     Active Substance: BOSENTAN
     Indication: PULMONARY ARTERIAL HYPERTENSION
     Dosage: 125 MG, BID
     Route: 048
     Dates: end: 201705

REACTIONS (2)
  - Dysphagia [Unknown]
  - Terminal state [Unknown]

NARRATIVE: CASE EVENT DATE: 20170507
